FAERS Safety Report 5277835-9 (Version None)
Quarter: 2007Q1

REPORT INFORMATION
  Report Type: 
  Country: None (occurrence: None)
  Receive Date: 20070321
  Receipt Date: 20070312
  Transmission Date: 20070707
  Serious: Yes (Hospitalization)
  Sender: FDA-Public Use
  Company Number: 2007SP000878

PATIENT
  Age: 56 Year
  Sex: Male
  Weight: 73.4827 kg

DRUGS (15)
  1. LUNESTA [Suspect]
     Indication: INSOMNIA
     Dosage: SEE IMAGE
     Route: 048
     Dates: start: 20050101, end: 20050101
  2. LUNESTA [Suspect]
     Indication: INSOMNIA
     Dosage: SEE IMAGE
     Route: 048
     Dates: start: 20050101, end: 20050101
  3. LUNESTA [Suspect]
     Indication: INSOMNIA
     Dosage: SEE IMAGE
     Route: 048
     Dates: start: 20050101, end: 20050101
  4. LUNESTA [Suspect]
     Indication: INSOMNIA
     Dosage: SEE IMAGE
     Route: 048
     Dates: start: 20060101, end: 20070301
  5. LUNESTA [Suspect]
     Indication: INSOMNIA
     Dosage: SEE IMAGE
     Route: 048
     Dates: start: 20070311, end: 20070311
  6. NOVOLIN 50/50 [Concomitant]
  7. AVANDIA [Concomitant]
  8. PRAVACHOL [Concomitant]
  9. CAPTOPRIL [Concomitant]
  10. METOPROLOL SUCCINATE [Concomitant]
  11. VITAMIN B-12 [Concomitant]
  12. FISH OIL [Concomitant]
  13. VITAMIN CAP [Concomitant]
  14. ACETYLSALICYLIC ACID SRT [Concomitant]
  15. FOLTX [Concomitant]

REACTIONS (9)
  - ANXIETY [None]
  - ARTERIAL OCCLUSIVE DISEASE [None]
  - CHEST DISCOMFORT [None]
  - DRUG INEFFECTIVE [None]
  - DYSPNOEA [None]
  - HEADACHE [None]
  - INSOMNIA [None]
  - INTERVERTEBRAL DISC PROTRUSION [None]
  - MIDDLE INSOMNIA [None]
